FAERS Safety Report 9787478 (Version 1)
Quarter: 2013Q4

REPORT INFORMATION
  Report Type: Spontaneous
  Country: FR (occurrence: FR)
  Receive Date: 20131230
  Receipt Date: 20131230
  Transmission Date: 20140711
  Serious: Yes (Hospitalization)
  Sender: FDA-Public Use
  Company Number: FR-ORION CORPORATION ORION PHARMA-ENTC2013-0484

PATIENT
  Age: 42 Year
  Sex: Female
  Weight: 70 kg

DRUGS (5)
  1. STALEVO [Suspect]
     Indication: PARKINSON^S DISEASE
     Dosage: STRENGTH: 150/12.5/200 MG
     Route: 048
  2. STALEVO [Suspect]
     Dosage: STRENGTH: 150/37.5/200 MG
     Route: 048
  3. MODOPAR [Suspect]
     Dosage: STRENGTH: 100/25 MG
     Route: 065
  4. APOKINON [Concomitant]
     Dosage: 6 MG/H
     Route: 065
     Dates: start: 201304
  5. APOKINON [Concomitant]
     Dosage: 2 MG/H
     Route: 065

REACTIONS (4)
  - Dyskinesia [Recovered/Resolved]
  - Akinesia [Recovered/Resolved]
  - Dystonia [Recovered/Resolved]
  - On and off phenomenon [Recovered/Resolved]
